FAERS Safety Report 9260828 (Version 1)
Quarter: 2013Q2

REPORT INFORMATION
  Report Type: Spontaneous
  Country: US (occurrence: US)
  Receive Date: 20130429
  Receipt Date: 20130429
  Transmission Date: 20140414
  Serious: Yes (Death, Hospitalization, Other)
  Sender: FDA-Public Use
  Company Number: US-VERTEX PHARMACEUTICALS INC-2013-005448

PATIENT
  Sex: Female

DRUGS (5)
  1. INCIVEK [Suspect]
     Indication: HEPATITIS C
     Dosage: 750 MG, TID
     Route: 048
     Dates: start: 20120628
  2. RIBAVIRIN [Suspect]
     Indication: HEPATITIS C
     Dosage: 1400 MG, QD
     Route: 048
     Dates: start: 20120628
  3. RIBAVIRIN [Suspect]
     Dosage: 800 MG, QD
     Route: 048
     Dates: end: 20121031
  4. PEGASYS [Suspect]
     Indication: HEPATITIS C
     Dosage: 180 ?G, QW
     Route: 058
     Dates: start: 20120628
  5. PEGASYS [Suspect]
     Dosage: 90 ?G, QW
     Route: 058
     Dates: end: 20121031

REACTIONS (5)
  - Acute respiratory failure [Fatal]
  - Septic shock [Fatal]
  - Cardiac failure congestive [Fatal]
  - Pneumonia [Fatal]
  - Anaemia [Unknown]
